FAERS Safety Report 22122920 (Version 1)
Quarter: 2023Q1

REPORT INFORMATION
  Report Type: Spontaneous
  Country: US (occurrence: US)
  Receive Date: 20230322
  Receipt Date: 20230322
  Transmission Date: 20230418
  Serious: Yes (Hospitalization)
  Sender: FDA-Public Use
  Company Number: US-BEH-2023156440

PATIENT
  Age: 23 Year
  Sex: Female

DRUGS (2)
  1. PRIVIGEN [Suspect]
     Active Substance: HUMAN IMMUNOGLOBULIN G
     Dosage: UNK, EVERY 3 WEEKS
     Route: 065
     Dates: start: 20230227
  2. REVCOVI [ELAPEGADEMASE] [Concomitant]
     Indication: Combined immunodeficiency
     Dosage: 2.4 MILLIGRAM (1,5 ML), BIW
     Route: 065
     Dates: start: 20210717

REACTIONS (2)
  - Urinary retention [Recovered/Resolved]
  - Dehydration [Recovered/Resolved]

NARRATIVE: CASE EVENT DATE: 20230228
